FAERS Safety Report 16713769 (Version 1)
Quarter: 2019Q3

REPORT INFORMATION
  Report Type: Other
  Country: IT (occurrence: IT)
  Receive Date: 20190819
  Receipt Date: 20190819
  Transmission Date: 20191004
  Serious: Yes (Other)
  Sender: FDA-Public Use
  Company Number: IT-CELLTRION INC.-2019IT023668

PATIENT

DRUGS (2)
  1. PERTUZUMAB. [Suspect]
     Active Substance: PERTUZUMAB
     Indication: BREAST CANCER
     Dosage: 1 DF, CYCLIC
     Route: 042
     Dates: start: 20180105
  2. TRASTUZUMAB (UNKNOWN) [Suspect]
     Active Substance: TRASTUZUMAB
     Indication: BREAST CANCER
     Dosage: 1 DF, CYCLIC
     Route: 042
     Dates: start: 20180105

REACTIONS (2)
  - Paraesthesia [Recovering/Resolving]
  - Amenorrhoea [Recovering/Resolving]

NARRATIVE: CASE EVENT DATE: 20181010
